FAERS Safety Report 5884211-4 (Version None)
Quarter: 2008Q3

REPORT INFORMATION
  Report Type: 
  Country: None (occurrence: None)
  Receive Date: 20080911
  Receipt Date: 20080904
  Transmission Date: 20090109
  Serious: Yes (Hospitalization)
  Sender: FDA-Public Use
  Company Number: 2008002154

PATIENT
  Age: 49 Year
  Sex: Male

DRUGS (5)
  1. ERLOTINIB (ERLOTINIB) (TABLET) (ERLOTINIB) [Suspect]
     Indication: HEAD AND NECK CANCER
     Dosage: (150 MG, QD), ORAL
     Route: 048
     Dates: start: 20080414, end: 20080809
  2. AVASTIN [Suspect]
     Indication: HEAD AND NECK CANCER
     Dosage: (15 MG/KG, DAY 1 + 22)
  3. AVASTIN [Suspect]
  4. AVASTIN [Suspect]
  5. PACLITAXEL [Suspect]
     Indication: HEAD AND NECK CANCER
     Dosage: (50 MG/M2, Q2W), INTRAVENOUS
     Route: 042

REACTIONS (7)
  - DEHYDRATION [None]
  - DERMATITIS ACNEIFORM [None]
  - DYSPEPSIA [None]
  - INADEQUATE ANALGESIA [None]
  - MUCOSAL INFLAMMATION [None]
  - OESOPHAGITIS [None]
  - PAIN [None]
